FAERS Safety Report 8205573-9 (Version None)
Quarter: 2012Q1

REPORT INFORMATION
  Report Type: 
  Country: None (occurrence: None)
  Receive Date: 20120313
  Receipt Date: 20120305
  Transmission Date: 20120608
  Serious: Yes (Hospitalization)
  Sender: FDA-Public Use
  Company Number: US-ACTELION-A-US2007-17109

PATIENT

DRUGS (2)
  1. COUMADIN [Concomitant]
  2. TRACLEER [Suspect]
     Indication: PULMONARY HYPERTENSION
     Dosage: UNK MG, UNK
     Route: 048
     Dates: start: 20070623

REACTIONS (6)
  - DYSPNOEA [None]
  - SINUSITIS [None]
  - DIARRHOEA [None]
  - BRONCHITIS [None]
  - PSORIATIC ARTHROPATHY [None]
  - SINUS HEADACHE [None]
